FAERS Safety Report 18300241 (Version 2)
Quarter: 2020Q3

REPORT INFORMATION
  Report Type: Other
  Country: US (occurrence: US)
  Receive Date: 20200923
  Receipt Date: 20200924
  Transmission Date: 20201103
  Serious: Yes (Hospitalization)
  Sender: FDA-Public Use
  Company Number: US-ROCHE-2678563

PATIENT
  Sex: Female

DRUGS (2)
  1. RITUXAN [Suspect]
     Active Substance: RITUXIMAB
     Indication: EYE SWELLING
     Dosage: ONE COURSE SEPARATED BY 2 WEEKS ;ONGOING: NO
     Route: 065
     Dates: start: 2015, end: 2019
  2. RITUXAN [Suspect]
     Active Substance: RITUXIMAB
     Indication: RHEUMATOID ARTHRITIS
     Dosage: ONE COURSE SEPARATED BY 2 WEEKS ;ONGOING: UNKNOWN
     Route: 065
     Dates: start: 20190101

REACTIONS (6)
  - Weight decreased [Unknown]
  - Off label use [Unknown]
  - Dyspnoea [Unknown]
  - Arthralgia [Unknown]
  - Organising pneumonia [Unknown]
  - Intentional product misuse [Unknown]

NARRATIVE: CASE EVENT DATE: 2015
